FAERS Safety Report 18899234 (Version 1)
Quarter: 2021Q1

REPORT INFORMATION
  Report Type: Spontaneous
  Country: US (occurrence: US)
  Receive Date: 20210216
  Receipt Date: 20210216
  Transmission Date: 20210420
  Serious: Yes (Other)
  Sender: FDA-Public Use
  Company Number: US-BEH-2021128281

PATIENT
  Sex: Female

DRUGS (4)
  1. BENADRYL [Concomitant]
     Active Substance: DIPHENHYDRAMINE HYDROCHLORIDE
     Indication: PREMEDICATION
     Route: 065
  2. HIZENTRA [Suspect]
     Active Substance: HUMAN IMMUNOGLOBULIN G
     Indication: MYOSITIS
     Route: 065
  3. SOLU?MEDROL [Concomitant]
     Active Substance: METHYLPREDNISOLONE SODIUM SUCCINATE
     Indication: PREMEDICATION
     Route: 065
  4. EPIPEN [Concomitant]
     Active Substance: EPINEPHRINE
     Indication: PREMEDICATION
     Route: 065

REACTIONS (11)
  - Wheezing [Unknown]
  - Pancreatitis [Unknown]
  - Vomiting [Unknown]
  - Musculoskeletal stiffness [Unknown]
  - No adverse event [Unknown]
  - Arthralgia [Unknown]
  - Abdominal pain upper [Unknown]
  - Off label use [Unknown]
  - Abdominal pain [Unknown]
  - Pain in extremity [Unknown]
  - Nausea [Unknown]
